FAERS Safety Report 14394581 (Version 1)
Quarter: 2018Q1

REPORT INFORMATION
  Report Type: Spontaneous
  Country: PT (occurrence: PT)
  Receive Date: 20180116
  Receipt Date: 20180116
  Transmission Date: 20180509
  Serious: Yes (Death, Hospitalization)
  Sender: FDA-Public Use
  Company Number: PT-VERTEX PHARMACEUTICALS-2018-000161

PATIENT
  Age: 29 Year
  Sex: Male

DRUGS (1)
  1. ORKAMBI [Suspect]
     Active Substance: IVACAFTOR\LUMACAFTOR
     Indication: CYSTIC FIBROSIS
     Dosage: HALF DOSE
     Route: 048
     Dates: start: 20171220, end: 20171225

REACTIONS (2)
  - Respiratory arrest [Fatal]
  - Infection [Unknown]

NARRATIVE: CASE EVENT DATE: 201712
